APPROVED DRUG PRODUCT: LEFLUNOMIDE
Active Ingredient: LEFLUNOMIDE
Strength: 20MG
Dosage Form/Route: TABLET;ORAL
Application: A212308 | Product #002 | TE Code: AB
Applicant: ZYDUS LIFESCIENCES GLOBAL FZE
Approved: Apr 24, 2019 | RLD: No | RS: No | Type: RX